FAERS Safety Report 10736755 (Version 1)
Quarter: 2015Q1

REPORT INFORMATION
  Report Type: Spontaneous
  Country: US (occurrence: None)
  Receive Date: 20150122
  Receipt Date: 20150122
  Transmission Date: 20150721
  Serious: Yes (Death)
  Sender: FDA-Public Use
  Company Number: POI0573201500012

PATIENT
  Age: 67 Year
  Sex: Male

DRUGS (3)
  1. NIFEDIPINE EXTENDED-RELEASE TABLETS, USP [Suspect]
     Active Substance: NIFEDIPINE
     Route: 048
     Dates: end: 2013
  2. ETHANOL [Suspect]
     Active Substance: ALCOHOL
     Route: 048
     Dates: end: 2013
  3. METOPROLOL [Suspect]
     Active Substance: METOPROLOL
     Route: 048
     Dates: end: 2013

REACTIONS (2)
  - Exposure via ingestion [None]
  - Completed suicide [None]

NARRATIVE: CASE EVENT DATE: 2013
